FAERS Safety Report 5105218-0 (Version None)
Quarter: 2006Q3

REPORT INFORMATION
  Report Type: 
  Country: None (occurrence: None)
  Receive Date: 20060911
  Receipt Date: 20060824
  Transmission Date: 20061208
  Serious: Yes (Hospitalization, Other)
  Sender: FDA-Public Use
  Company Number: US-2006-012281

PATIENT
  Age: 51 Year
  Sex: Female
  Weight: 83.9 kg

DRUGS (21)
  1. BETASERON [Suspect]
     Indication: MULTIPLE SCLEROSIS
     Dosage: SEE IMAGE
     Route: 058
     Dates: start: 20060510, end: 20060601
  2. BETASERON [Suspect]
     Indication: MULTIPLE SCLEROSIS
     Dosage: SEE IMAGE
     Route: 058
     Dates: start: 20060601, end: 20060601
  3. BETASERON [Suspect]
     Indication: MULTIPLE SCLEROSIS
     Dosage: SEE IMAGE
     Route: 058
     Dates: start: 20060601
  4. ARIMIDEX [Concomitant]
  5. LIPITOR [Concomitant]
  6. TRAZODONE HCL [Concomitant]
  7. NEURONTIN [Concomitant]
  8. BP MEDS [Concomitant]
  9. PAXIL [Concomitant]
  10. ASPIRIN [Concomitant]
  11. CALCIUM CITRATE W/VITAMIN D NOS (CALCIUM CITRATE, VITAMIN D NOS) [Concomitant]
  12. (OTC) STOOL SOFTENER (DOCUSATE SODIUM) [Concomitant]
  13. METANX [Concomitant]
  14. DIAZIDE (GLICLAZIDE) [Concomitant]
  15. TRIAMTERENE AND HYDROCHLOROTHIAZIDE [Concomitant]
  16. IBUPROFEN [Concomitant]
  17. WELLBUTRIN [Concomitant]
  18. NEXIUM [Concomitant]
  19. MOTRIN [Concomitant]
  20. MAXZIDE [Concomitant]
  21. NORMAL SALINE [Concomitant]

REACTIONS (17)
  - ATRIAL FIBRILLATION [None]
  - CARDIOMYOPATHY [None]
  - DIZZINESS [None]
  - FALL [None]
  - FOOT FRACTURE [None]
  - INJECTION SITE BRUISING [None]
  - INJECTION SITE PAIN [None]
  - INJECTION SITE REACTION [None]
  - MULTIPLE SCLEROSIS RELAPSE [None]
  - OEDEMA PERIPHERAL [None]
  - OPTIC NEURITIS [None]
  - PARAESTHESIA [None]
  - SINUS BRADYCARDIA [None]
  - SUPRAVENTRICULAR EXTRASYSTOLES [None]
  - VAGINAL HAEMORRHAGE [None]
  - VASCULAR FRAGILITY [None]
  - VISUAL FIELD DEFECT [None]
